FAERS Safety Report 21047586 (Version 1)
Quarter: 2022Q3

REPORT INFORMATION
  Report Type: Spontaneous
  Country: US (occurrence: None)
  Receive Date: 20220706
  Receipt Date: 20220706
  Transmission Date: 20221027
  Serious: Yes (Death, Hospitalization)
  Sender: FDA-Public Use
  Company Number: None

PATIENT
  Age: 54 Year
  Sex: Female
  Weight: 68.8 kg

DRUGS (4)
  1. CYCLOPHOSPHAMIDE [Suspect]
     Active Substance: CYCLOPHOSPHAMIDE
     Dates: end: 20170727
  2. DOXORUBICIN HYDROCHLORIDE [Suspect]
     Active Substance: DOXORUBICIN HYDROCHLORIDE
     Dates: end: 20170727
  3. CARBOPLATIN [Suspect]
     Active Substance: CARBOPLATIN
     Dates: end: 20171012
  4. TAXOL [Suspect]
     Active Substance: PACLITAXEL
     Dates: end: 20171019

REACTIONS (9)
  - Neutropenia [None]
  - Neurotoxicity [None]
  - Neuropathy peripheral [None]
  - Myelodysplastic syndrome [None]
  - Acute myeloid leukaemia [None]
  - Fungal infection [None]
  - Pneumonia [None]
  - Lung infiltration [None]
  - Therapy non-responder [None]

NARRATIVE: CASE EVENT DATE: 20220307
